FAERS Safety Report 8504627 (Version 2)
Quarter: 2016Q1

REPORT INFORMATION
  Report Type: Spontaneous
  Country: US (occurrence: US)
  Receive Date: 20120411
  Receipt Date: 20160126
  Transmission Date: 20160526
  Serious: No
  Sender: FDA-Public Use
  Company Number: US-B.I. PHARMACEUTICALS,INC./RIDGEFIELD-2012-BP-06757BP

PATIENT
  Age: 81 Year
  Sex: Female

DRUGS (7)
  1. TRADJENTA [Suspect]
     Active Substance: LINAGLIPTIN
     Indication: TYPE 2 DIABETES MELLITUS
     Dosage: 5 MG
     Route: 065
     Dates: start: 20120320
  2. COUMADIN [Concomitant]
     Active Substance: WARFARIN SODIUM
     Indication: HEART RATE IRREGULAR
  3. SYNTHROID [Concomitant]
     Active Substance: LEVOTHYROXINE SODIUM
     Indication: HYPOTHYROIDISM
     Dosage: 75 MG
     Route: 048
  4. QUIINAPRIL [Concomitant]
     Indication: ANGIOTENSIN CONVERTING ENZYME
     Dosage: 20 MG
     Route: 048
  5. TRADJENTA [Suspect]
     Active Substance: LINAGLIPTIN
     Dosage: 2.5 MG
     Route: 065
     Dates: start: 20120404
  6. COUMADIN [Concomitant]
     Active Substance: WARFARIN SODIUM
     Indication: HEART RATE INCREASED
     Dosage: 7 MG
     Route: 048
  7. BISOPROLOL [Concomitant]
     Active Substance: BISOPROLOL
     Indication: DRUG THERAPY
     Dosage: 10 MG
     Route: 048

REACTIONS (3)
  - Pollakiuria [Not Recovered/Not Resolved]
  - Arthralgia [Not Recovered/Not Resolved]
  - Bone pain [Not Recovered/Not Resolved]

NARRATIVE: CASE EVENT DATE: 20120320
